FAERS Safety Report 22038094 (Version 6)
Quarter: 2025Q1

REPORT INFORMATION
  Report Type: Report from Study
  Country: US (occurrence: US)
  Receive Date: 20230227
  Receipt Date: 20250320
  Transmission Date: 20250408
  Serious: Yes (Other)
  Sender: AMGEN
  Company Number: US-AMGEN-USASP2023031839

PATIENT
  Age: 57 Year
  Sex: Female

DRUGS (4)
  1. AIMOVIG [Suspect]
     Active Substance: ERENUMAB-AOOE
     Indication: Migraine
     Dosage: 140 MILLIGRAM, QMO
     Route: 065
  2. AIMOVIG [Suspect]
     Active Substance: ERENUMAB-AOOE
     Dosage: 140 MILLIGRAM, QMO
     Route: 065
  3. AIMOVIG [Suspect]
     Active Substance: ERENUMAB-AOOE
     Dosage: 140 MILLIGRAM, QMO
     Route: 065
  4. AIMOVIG [Suspect]
     Active Substance: ERENUMAB-AOOE
     Route: 065

REACTIONS (16)
  - Encephalitis [Unknown]
  - Post procedural infection [Unknown]
  - Respiratory tract infection [Unknown]
  - Tremor [Unknown]
  - Device use error [Unknown]
  - Accidental exposure to product [Unknown]
  - Inappropriate schedule of product administration [Unknown]
  - Drug dose omission by device [Unknown]
  - Headache [Unknown]
  - Migraine [Unknown]
  - Therapeutic response shortened [Unknown]
  - Trigeminal nerve disorder [Unknown]
  - Bronchitis [Unknown]
  - Ocular discomfort [Unknown]
  - Skin disorder [Unknown]
  - Onycholysis [Unknown]

NARRATIVE: CASE EVENT DATE: 20230218
